FAERS Safety Report 7330225-7 (Version None)
Quarter: 2011Q1

REPORT INFORMATION
  Report Type: 
  Country: None (occurrence: None)
  Receive Date: 20110303
  Receipt Date: 20110225
  Transmission Date: 20110831
  Serious: Yes (Life-Threatening, Other)
  Sender: FDA-Public Use
  Company Number: AU-AMGEN-AUSSP2010007697

PATIENT
  Age: 69 Year
  Sex: Male
  Weight: 97 kg

DRUGS (5)
  1. NEULASTA [Suspect]
     Indication: CHEMOTHERAPY
     Dosage: 6 MG, ONE TIME DOSE
     Route: 058
     Dates: start: 20101127, end: 20101127
  2. VINCRISTINE [Concomitant]
     Dosage: 2 MG, UNK
     Dates: start: 20101126, end: 20101126
  3. RITUXIMAB [Concomitant]
     Dosage: UNK
  4. PREDNISONE [Concomitant]
     Dosage: 100 MG, UNK
     Dates: start: 20101126, end: 20101201
  5. CYCLOPHOSPHAMIDE [Concomitant]
     Dosage: 1500 MG, UNK
     Dates: start: 20101126, end: 20101126

REACTIONS (2)
  - DRUG INEFFECTIVE [None]
  - NEUTROPENIC SEPSIS [None]
